FAERS Safety Report 5919372-1 (Version None)
Quarter: 2008Q4

REPORT INFORMATION
  Report Type: 
  Country: None (occurrence: None)
  Receive Date: 20081015
  Receipt Date: 20081008
  Transmission Date: 20090506
  Serious: Yes (Other)
  Sender: FDA-Public Use
  Company Number: B0533222A

PATIENT
  Age: 59 Year
  Sex: Male
  Weight: 61.8 kg

DRUGS (3)
  1. SERETIDE [Suspect]
     Indication: ASTHMA
     Dosage: 2PUFF TWICE PER DAY
     Route: 055
     Dates: start: 20080101, end: 20080801
  2. UNIPHYL [Concomitant]
     Dosage: 400MG TWICE PER DAY
     Route: 048
  3. OMEPRAZOLE [Concomitant]
     Dosage: 20MG TWICE PER DAY

REACTIONS (2)
  - DYSPNOEA [None]
  - RESPIRATORY ARREST [None]
